FAERS Safety Report 4733474-7 (Version None)
Quarter: 2005Q3

REPORT INFORMATION
  Report Type: 
  Country: None (occurrence: None)
  Receive Date: 20050801
  Receipt Date: 20050722
  Transmission Date: 20060218
  Serious: Yes (Hospitalization)
  Sender: FDA-Public Use
  Company Number: 26766

PATIENT
  Age: 68 Year
  Sex: Male

DRUGS (1)
  1. TAMBOCOR [Suspect]
     Indication: ATRIAL FIBRILLATION
     Dosage: 400 MG (200 MG, 2 IN 1 D(S)), ORAL
     Route: 048
     Dates: start: 20050523, end: 20050602

REACTIONS (7)
  - ATRIAL FIBRILLATION [None]
  - CARDIAC DISORDER [None]
  - ELECTROCARDIOGRAM QT CORRECTED INTERVAL PROLONGED [None]
  - ELECTROCARDIOGRAM QT PROLONGED [None]
  - LOSS OF CONSCIOUSNESS [None]
  - NEGATIVE CARDIAC INOTROPIC EFFECT [None]
  - VENTRICULAR TACHYCARDIA [None]
